FAERS Safety Report 5371737-5 (Version None)
Quarter: 2007Q2

REPORT INFORMATION
  Report Type: 
  Country: None (occurrence: None)
  Receive Date: 20070627
  Receipt Date: 20070621
  Transmission Date: 20071010
  Serious: Yes (Death)
  Sender: FDA-Public Use
  Company Number: US-ELI_LILLY_AND_COMPANY-US200706004872

PATIENT
  Sex: Male

DRUGS (1)
  1. XIGRIS [Suspect]
     Route: 042

REACTIONS (1)
  - MULTI-ORGAN FAILURE [None]
